APPROVED DRUG PRODUCT: VALBENAZINE TOSYLATE
Active Ingredient: VALBENAZINE TOSYLATE
Strength: EQ 40MG BASE
Dosage Form/Route: CAPSULE;ORAL
Application: A216064 | Product #001 | TE Code: AB
Applicant: LUPIN LTD
Approved: Apr 5, 2024 | RLD: No | RS: No | Type: RX